FAERS Safety Report 15921052 (Version 1)
Quarter: 2019Q1

REPORT INFORMATION
  Report Type: Spontaneous
  Country: US (occurrence: US)
  Receive Date: 20190205
  Receipt Date: 20190205
  Transmission Date: 20190417
  Serious: No
  Sender: FDA-Public Use
  Company Number: US-GALDERMA-US18036923

PATIENT
  Age: 65 Year
  Sex: Female

DRUGS (2)
  1. SOOLANTRA [Suspect]
     Active Substance: IVERMECTIN
     Indication: ROSACEA
     Dosage: 1%
     Route: 061
     Dates: start: 201807
  2. SOOLANTRA [Suspect]
     Active Substance: IVERMECTIN
     Indication: MITE ALLERGY

REACTIONS (4)
  - Product use in unapproved indication [Recovered/Resolved]
  - Intentional overdose [Recovered/Resolved]
  - Drug ineffective for unapproved indication [Not Recovered/Not Resolved]
  - Inappropriate schedule of product administration [Recovered/Resolved]

NARRATIVE: CASE EVENT DATE: 201807
